FAERS Safety Report 10395698 (Version 1)
Quarter: 2014Q3

REPORT INFORMATION
  Report Type: Spontaneous
  Country: US (occurrence: None)
  Receive Date: 20140819
  Receipt Date: 20140819
  Transmission Date: 20150326
  Serious: Yes (Other)
  Sender: FDA-Public Use
  Company Number: None

PATIENT
  Age: 82 Year
  Sex: Male
  Weight: 80.74 kg

DRUGS (1)
  1. CEFEPIME [Suspect]
     Active Substance: CEFEPIME\CEFEPIME HYDROCHLORIDE
     Indication: PNEUMONIA
     Dosage: 1 DOSE
     Route: 042
     Dates: start: 20140813

REACTIONS (2)
  - Muscle twitching [None]
  - Asthenia [None]

NARRATIVE: CASE EVENT DATE: 20140813
